FAERS Safety Report 8504157-2 (Version None)
Quarter: 2012Q3

REPORT INFORMATION
  Report Type: 
  Country: None (occurrence: None)
  Receive Date: 20120711
  Receipt Date: 20120706
  Transmission Date: 20120928
  Serious: Yes (Other)
  Sender: FDA-Public Use
  Company Number: GB-009507513-1206USA00248

PATIENT

DRUGS (1)
  1. COZAAR [Suspect]
     Route: 048
     Dates: start: 20120309

REACTIONS (5)
  - PERIPHERAL COLDNESS [None]
  - DYSPEPSIA [None]
  - ABDOMINAL PAIN UPPER [None]
  - LETHARGY [None]
  - NAUSEA [None]
